FAERS Safety Report 25421807 (Version 2)
Quarter: 2025Q3

REPORT INFORMATION
  Report Type: Spontaneous
  Country: EU (occurrence: EU)
  Receive Date: 20250611
  Receipt Date: 20250908
  Transmission Date: 20251021
  Serious: Yes (Life-Threatening, Other)
  Sender: STRIDES
  Company Number: EU-STRIDES ARCOLAB LIMITED-2025SP007034

PATIENT
  Age: 39 Year
  Sex: Male

DRUGS (7)
  1. MYCOPHENOLATE MOFETIL [Suspect]
     Active Substance: MYCOPHENOLATE MOFETIL
     Indication: Acquired haemophilia
     Route: 065
  2. CYCLOSPORINE [Suspect]
     Active Substance: CYCLOSPORINE
     Indication: Acquired haemophilia
     Route: 065
  3. TOLODODEKIN ALFA [Suspect]
     Active Substance: TOLODODEKIN ALFA
     Indication: Acquired haemophilia
     Route: 065
  4. RITUXIMAB [Concomitant]
     Active Substance: RITUXIMAB
     Indication: Acquired haemophilia
     Route: 065
  5. CYCLOPHOSPHAMIDE [Concomitant]
     Active Substance: CYCLOPHOSPHAMIDE
     Indication: Acquired haemophilia
     Route: 065
  6. DEXAMETHASONE [Concomitant]
     Active Substance: DEXAMETHASONE
     Indication: Acquired haemophilia
     Route: 065
  7. EMICIZUMAB [Concomitant]
     Active Substance: EMICIZUMAB
     Indication: Haemorrhage prophylaxis
     Route: 065

REACTIONS (5)
  - Airway compression [Recovered/Resolved]
  - Subdural haemorrhage [Recovered/Resolved]
  - Subarachnoid haemorrhage [Recovered/Resolved]
  - Haematoma [Recovered/Resolved]
  - Drug ineffective for unapproved indication [Unknown]
